FAERS Safety Report 4326920-4 (Version None)
Quarter: 2004Q1

REPORT INFORMATION
  Report Type: 
  Country: None (occurrence: None)
  Receive Date: 20040330
  Receipt Date: 20040209
  Transmission Date: 20041129
  Serious: Yes (Hospitalization)
  Sender: FDA-Public Use
  Company Number: US-ROCHE-358644

PATIENT
  Age: 20 Year
  Sex: Female
  Weight: 60.3 kg

DRUGS (2)
  1. ACCUTANE [Suspect]
     Route: 048
     Dates: start: 20001215, end: 20010515
  2. CLARITIN [Concomitant]
     Route: 048

REACTIONS (24)
  - ABDOMINAL DISTENSION [None]
  - ACNE [None]
  - ANXIETY [None]
  - CHEST PAIN [None]
  - DEAFNESS [None]
  - DEHYDRATION [None]
  - DERMATITIS CONTACT [None]
  - DIZZINESS [None]
  - DRY MOUTH [None]
  - DRY SKIN [None]
  - DYSPNOEA [None]
  - ERYTHEMA [None]
  - FATIGUE [None]
  - GASTRITIS [None]
  - GASTROENTERITIS [None]
  - GASTROOESOPHAGEAL REFLUX DISEASE [None]
  - HYPOTRICHOSIS [None]
  - INSOMNIA [None]
  - IRRITABLE BOWEL SYNDROME [None]
  - LIP DRY [None]
  - PALPITATIONS [None]
  - RASH SCALY [None]
  - SKIN REACTION [None]
  - VENTRICULAR EXTRASYSTOLES [None]
